FAERS Safety Report 9896570 (Version 1)
Quarter: 2014Q1

REPORT INFORMATION
  Report Type: Spontaneous
  Country: US (occurrence: US)
  Receive Date: 20140213
  Receipt Date: 20140213
  Transmission Date: 20141002
  Serious: No
  Sender: FDA-Public Use
  Company Number: US-BRISTOL-MYERS SQUIBB COMPANY-19119122

PATIENT
  Age: 37 Year
  Sex: Female
  Weight: 67.57 kg

DRUGS (4)
  1. ABATACEPT SUBQ INJECTION 125MG/ML [Suspect]
     Dosage: ORENCIA 125MG/ML PFS (4 PACK)
     Route: 058
  2. CELEBREX [Concomitant]
     Dosage: CAPS
  3. OMEPRAZOLE [Concomitant]
     Dosage: CAPS
  4. VITAMIN D [Concomitant]
     Dosage: 1DF: 100 UNITS, CAPS

REACTIONS (2)
  - Increased appetite [Unknown]
  - Weight increased [Unknown]
